FAERS Safety Report 8603458-7 (Version None)
Quarter: 2012Q3

REPORT INFORMATION
  Report Type: 
  Country: None (occurrence: None)
  Receive Date: 20120817
  Receipt Date: 20120531
  Transmission Date: 20120928
  Serious: Yes (Other)
  Sender: FDA-Public Use
  Company Number: US-TEVA-2010004427

PATIENT
  Sex: Female
  Weight: 60.382 kg

DRUGS (5)
  1. ZYRTEC [Concomitant]
     Indication: HYPERSENSITIVITY
     Dates: start: 20090101
  2. MULTI-VITAMINS [Concomitant]
     Dates: start: 20100501
  3. PROVIGIL [Suspect]
     Indication: NARCOLEPSY
     Route: 048
     Dates: start: 20020101, end: 20110101
  4. PROVIGIL [Suspect]
     Dosage: 28.5714 MILLIGRAM DAILY;
     Route: 048
     Dates: start: 20020101, end: 20110101
  5. RITALIN [Suspect]
     Indication: NARCOLEPSY
     Dosage: 10 MILLIGRAM DAILY;
     Dates: start: 20110102

REACTIONS (2)
  - MATERNAL EXPOSURE DURING PREGNANCY [None]
  - FOETAL DISTRESS SYNDROME [None]
